FAERS Safety Report 25186686 (Version 1)
Quarter: 2025Q2

REPORT INFORMATION
  Report Type: Report from Study
  Country: JP (occurrence: JP)
  Receive Date: 20250411
  Receipt Date: 20250411
  Transmission Date: 20250717
  Serious: Yes (Death, Other)
  Sender: ROCHE
  Company Number: JP-CHUGAI-2024043308

PATIENT
  Age: 37 Year
  Sex: Male
  Weight: 62.2 kg

DRUGS (9)
  1. POLIVY [Suspect]
     Active Substance: POLATUZUMAB VEDOTIN-PIIQ
     Indication: Diffuse large B-cell lymphoma recurrent
     Route: 042
     Dates: start: 20210830, end: 20211224
  2. ACTEMRA [Suspect]
     Active Substance: TOCILIZUMAB
     Indication: Cytokine release syndrome
     Route: 065
  3. RITUXIMAB [Suspect]
     Active Substance: RITUXIMAB
     Indication: Diffuse large B-cell lymphoma recurrent
     Route: 042
     Dates: start: 20210803, end: 20210803
  4. RITUXIMAB [Suspect]
     Active Substance: RITUXIMAB
     Route: 042
     Dates: start: 20210830, end: 20211224
  5. KYMRIAH [Suspect]
     Active Substance: TISAGENLECLEUCEL
     Indication: Diffuse large B-cell lymphoma recurrent
     Route: 042
     Dates: start: 20210625, end: 20210625
  6. BENDAMUSTINE HYDROCHLORIDE [Suspect]
     Active Substance: BENDAMUSTINE HYDROCHLORIDE
     Indication: Diffuse large B-cell lymphoma recurrent
     Route: 042
     Dates: start: 20210830, end: 20211224
  7. FLUDARABINE PHOSPHATE [Concomitant]
     Active Substance: FLUDARABINE PHOSPHATE
     Route: 065
     Dates: start: 20210620
  8. CYCLOPHOSPHAMIDE [Concomitant]
     Active Substance: CYCLOPHOSPHAMIDE
     Route: 065
     Dates: start: 20210620
  9. LENALIDOMIDE [Concomitant]
     Active Substance: LENALIDOMIDE
     Indication: Diffuse large B-cell lymphoma recurrent
     Route: 065
     Dates: start: 20210803

REACTIONS (4)
  - White blood cell count decreased [Unknown]
  - Septic shock [Fatal]
  - Platelet count decreased [Unknown]
  - Lymphocyte count decreased [Unknown]

NARRATIVE: CASE EVENT DATE: 20220119
